FAERS Safety Report 8030714-6 (Version None)
Quarter: 2012Q1

REPORT INFORMATION
  Report Type: 
  Country: None (occurrence: None)
  Receive Date: 20120109
  Receipt Date: 20120104
  Transmission Date: 20120608
  Serious: Yes (Hospitalization)
  Sender: FDA-Public Use
  Company Number: PHHY2011FR85461

PATIENT
  Sex: Male
  Weight: 75 kg

DRUGS (13)
  1. EZETIMIBE [Concomitant]
     Dosage: 10 MG
     Route: 048
     Dates: start: 20060301
  2. CERTICAN [Suspect]
     Indication: PROPHYLAXIS AGAINST TRANSPLANT REJECTION
     Dosage: 0.75 MG
     Dates: start: 20060501, end: 20110901
  3. OMACOR [Concomitant]
     Dosage: 1 DF
     Route: 048
     Dates: start: 20081101
  4. ASPIRIN [Concomitant]
     Dosage: 75 MG
     Route: 048
     Dates: start: 20060201
  5. TENORMIN [Concomitant]
     Dosage: 50 MG
     Route: 048
     Dates: start: 20100601
  6. ESOMEPRAZOLE SODIUM [Concomitant]
     Dosage: 20 MG
     Route: 048
     Dates: start: 20080201
  7. PROCORALAN [Concomitant]
     Dosage: 10 MG
     Route: 048
     Dates: start: 20100601
  8. NEORAL [Concomitant]
     Dosage: 25 MG, BID
     Route: 048
     Dates: start: 19911001
  9. PREVISCAN [Concomitant]
     Dosage: DOSE DEPENDING ON INR
     Route: 048
     Dates: start: 20080601
  10. LASIX [Concomitant]
     Dosage: 80 MG
     Route: 048
     Dates: start: 19911001
  11. VALSARTAN [Concomitant]
     Dosage: 160 MG
     Route: 048
     Dates: start: 20100601
  12. ATORVASTATIN CALCIUM [Concomitant]
     Dosage: 80 MG,
     Route: 048
     Dates: start: 20080401
  13. ALLOPURINOL [Concomitant]
     Dosage: 100 MG,
     Route: 048
     Dates: start: 20070201

REACTIONS (2)
  - INTERSTITIAL LUNG DISEASE [None]
  - COUGH [None]
